FAERS Safety Report 8490118-9 (Version None)
Quarter: 2012Q3

REPORT INFORMATION
  Report Type: 
  Country: None (occurrence: None)
  Receive Date: 20120705
  Receipt Date: 20120629
  Transmission Date: 20120928
  Serious: Yes (Hospitalization, Other)
  Sender: FDA-Public Use
  Company Number: JP-JNJFOC-20110907488

PATIENT
  Sex: Male
  Weight: 59 kg

DRUGS (13)
  1. NITRAZEPAM [Concomitant]
     Route: 048
  2. SENNOSIDE [Concomitant]
     Route: 048
     Dates: start: 20110523
  3. FERROUS CITRATE [Concomitant]
     Route: 048
     Dates: start: 20110421, end: 20110820
  4. MAGLAX [Concomitant]
     Route: 048
     Dates: start: 20110611
  5. FERROUS CITRATE [Concomitant]
     Route: 048
     Dates: start: 20110226, end: 20110420
  6. MAGLAX [Concomitant]
     Route: 048
     Dates: start: 20110524, end: 20110610
  7. INVEGA [Suspect]
     Indication: SCHIZOPHRENIA
     Route: 048
     Dates: start: 20110813, end: 20110815
  8. TASMOLIN [Concomitant]
     Route: 048
     Dates: end: 20110416
  9. SENNOSIDE [Concomitant]
     Route: 048
     Dates: start: 20110413, end: 20110522
  10. FERROUS CITRATE [Concomitant]
     Route: 048
     Dates: end: 20110225
  11. ESTAZOLAM [Concomitant]
     Route: 048
     Dates: start: 20101202
  12. ESTAZOLAM [Concomitant]
     Route: 048
     Dates: end: 20101201
  13. MAGLAX [Concomitant]
     Route: 048
     Dates: start: 20110413, end: 20110523

REACTIONS (4)
  - LIVER DISORDER [None]
  - HYPERTHERMIA [None]
  - DECUBITUS ULCER [None]
  - PANCYTOPENIA [None]
